FAERS Safety Report 15918057 (Version 1)
Quarter: 2019Q1

REPORT INFORMATION
  Report Type: Spontaneous
  Country: CY (occurrence: CY)
  Receive Date: 20190205
  Receipt Date: 20190205
  Transmission Date: 20190417
  Serious: Yes (Other)
  Sender: FDA-Public Use
  Company Number: CY-SAKK-2019SA023682AA

PATIENT
  Age: 63 Year
  Sex: Male

DRUGS (2)
  1. DOCETAXEL. [Suspect]
     Active Substance: DOCETAXEL
     Indication: PROSTATE CANCER
     Dosage: UNK UNK, QCY
  2. DOCETAXEL. [Suspect]
     Active Substance: DOCETAXEL
     Indication: METASTASIS
     Dosage: UNK, QCY
     Dates: start: 201604, end: 201604

REACTIONS (5)
  - Metastases to bone [Unknown]
  - Extradural abscess [Unknown]
  - Back pain [Unknown]
  - Headache [Unknown]
  - Prostatic specific antigen increased [Unknown]

NARRATIVE: CASE EVENT DATE: 201605
